FAERS Safety Report 22084967 (Version 4)
Quarter: 2023Q2

REPORT INFORMATION
  Report Type: Spontaneous
  Country: US (occurrence: US)
  Receive Date: 20230310
  Receipt Date: 20230607
  Transmission Date: 20230722
  Serious: No
  Sender: FDA-Public Use
  Company Number: US-PFIZER INC-PV202300018350

PATIENT
  Age: 29 Year
  Sex: Female
  Weight: 98.88 kg

DRUGS (2)
  1. TOVIAZ [Suspect]
     Active Substance: FESOTERODINE FUMARATE
     Indication: Multiple sclerosis
     Dosage: 8 MG, 1X/DAY (8 MG/A DAY)
     Route: 048
     Dates: start: 2008
  2. NITROFURANTOIN [Concomitant]
     Active Substance: NITROFURANTOIN
     Dosage: 50 MG, 1X/DAY
     Dates: start: 2008

REACTIONS (2)
  - Bladder spasm [Not Recovered/Not Resolved]
  - Off label use [Unknown]

NARRATIVE: CASE EVENT DATE: 20080101
